FAERS Safety Report 17420362 (Version 2)
Quarter: 2020Q2

REPORT INFORMATION
  Report Type: Spontaneous
  Country: US (occurrence: US)
  Receive Date: 20200214
  Receipt Date: 20200406
  Transmission Date: 20200713
  Serious: No
  Sender: FDA-Public Use
  Company Number: US-VERTEX PHARMACEUTICALS-2020-001280

PATIENT
  Sex: Male

DRUGS (14)
  1. TOBI [Concomitant]
     Active Substance: TOBRAMYCIN
  2. TRIKAFTA [Suspect]
     Active Substance: ELEXACAFTOR\IVACAFTOR\TEZACAFTOR
     Indication: CYSTIC FIBROSIS
     Dosage: 2 TABS (100MG ELEXACAFTO/50MG TEZACAFTOR/75MG IVACAFTOR) AM; 1 TAB (150MG IVACAFTOR)PM
     Route: 048
     Dates: start: 202001
  3. CREON [Concomitant]
     Active Substance: PANCRELIPASE AMYLASE\PANCRELIPASE LIPASE\PANCRELIPASE PROTEASE
  4. VITAMIN D [COLECALCIFEROL] [Concomitant]
     Active Substance: CHOLECALCIFEROL
  5. PERTZYE [Concomitant]
     Active Substance: PANCRELIPASE AMYLASE\PANCRELIPASE LIPASE\PANCRELIPASE PROTEASE
  6. PULMOZYME [Concomitant]
     Active Substance: DORNASE ALFA
  7. XOPENEX [Concomitant]
     Active Substance: LEVALBUTEROL HYDROCHLORIDE
  8. AZITHROMYCIN ANHYDROUS. [Concomitant]
     Active Substance: AZITHROMYCIN ANHYDROUS
  9. HYPERSAL [Concomitant]
     Active Substance: SODIUM CHLORIDE
  10. CAYSTON [Concomitant]
     Active Substance: AZTREONAM
  11. FEXOFENADINE [Concomitant]
     Active Substance: FEXOFENADINE HYDROCHLORIDE
  12. LANSOPRAZOLE. [Concomitant]
     Active Substance: LANSOPRAZOLE
  13. BETHKIS [Concomitant]
     Active Substance: TOBRAMYCIN
  14. VITAMIN K [MENADIONE] [Concomitant]
     Active Substance: MENADIONE

REACTIONS (5)
  - Gastric disorder [Unknown]
  - Rhinorrhoea [Recovered/Resolved]
  - Weight increased [Unknown]
  - Sinus disorder [Unknown]
  - Rash [Unknown]

NARRATIVE: CASE EVENT DATE: 2020
